FAERS Safety Report 4280616-6 (Version None)
Quarter: 2004Q1

REPORT INFORMATION
  Report Type: 
  Country: None (occurrence: None)
  Receive Date: 20040127
  Receipt Date: 20040112
  Transmission Date: 20041129
  Serious: Yes (Hospitalization, Other)
  Sender: FDA-Public Use
  Company Number: 2003119336

PATIENT
  Age: 69 Year
  Sex: Female

DRUGS (9)
  1. TIKOSYN [Suspect]
     Indication: ATRIAL FIBRILLATION
     Dosage: 250 MCG (150, BID), ORAL
     Route: 048
  2. FUROSEMIDE [Concomitant]
  3. CARVEDILOL [Concomitant]
  4. SPIRONOLACTONE [Concomitant]
  5. LEVOTHYROXINE SODIUM [Concomitant]
  6. CONJUGATED ESTROGENS [Concomitant]
  7. INSULIN [Concomitant]
  8. HYDROCODONE (HYDROCODONE) [Concomitant]
  9. ACETYLSALICYLIC ACID SRT [Concomitant]

REACTIONS (27)
  - ANAEMIA [None]
  - ASCITES [None]
  - BACK PAIN [None]
  - BLOOD CREATININE INCREASED [None]
  - BLOOD IRON DECREASED [None]
  - CARDIAC FAILURE CONGESTIVE [None]
  - CARDIOMEGALY [None]
  - CONDITION AGGRAVATED [None]
  - CONTUSION [None]
  - DIZZINESS [None]
  - ECCHYMOSIS [None]
  - FATIGUE [None]
  - FLUID OVERLOAD [None]
  - HAEMORRHOIDS [None]
  - HEPATIC ATROPHY [None]
  - HEPATIC MASS [None]
  - HEPATIC NEOPLASM [None]
  - MARKEDLY REDUCED DIETARY INTAKE [None]
  - MELAENA [None]
  - OEDEMA PERIPHERAL [None]
  - PALPITATIONS [None]
  - PNEUMONIA [None]
  - PULMONARY CONGESTION [None]
  - RECTAL HAEMORRHAGE [None]
  - SPLENOMEGALY [None]
  - VIRAL INFECTION [None]
  - VOMITING [None]
